FAERS Safety Report 14583039 (Version 1)
Quarter: 2018Q1

REPORT INFORMATION
  Report Type: Report from Study
  Country: JP (occurrence: JP)
  Receive Date: 20180228
  Receipt Date: 20180228
  Transmission Date: 20180509
  Serious: Yes (Other)
  Sender: FDA-Public Use
  Company Number: JP-CELGENEUS-JPN-20171204301

PATIENT
  Age: 66 Year
  Sex: Female

DRUGS (17)
  1. CILOSTAZOL. [Concomitant]
     Active Substance: CILOSTAZOL
     Indication: THROMBOSIS PROPHYLAXIS
     Route: 065
     Dates: start: 20171128
  2. PREDNISOLONE. [Concomitant]
     Active Substance: PREDNISOLONE
     Route: 048
  3. DECADRON [Suspect]
     Active Substance: DEXAMETHASONE
     Dosage: 40 MILLIGRAM
     Route: 048
     Dates: start: 20180111, end: 20180113
  4. REVLIMID [Suspect]
     Active Substance: LENALIDOMIDE
     Indication: ADULT T-CELL LYMPHOMA/LEUKAEMIA
     Dosage: 20 MILLIGRAM
     Route: 048
     Dates: start: 20171128, end: 20171214
  5. GEMCITABINE [Suspect]
     Active Substance: GEMCITABINE\GEMCITABINE HYDROCHLORIDE
     Indication: ADULT T-CELL LYMPHOMA/LEUKAEMIA
     Dosage: 1250 MILLIGRAM
     Route: 041
     Dates: start: 20171215, end: 20171215
  6. DECADRON [Suspect]
     Active Substance: DEXAMETHASONE
     Indication: ADULT T-CELL LYMPHOMA/LEUKAEMIA
     Dosage: 40 MILLIGRAM
     Route: 048
     Dates: start: 20171216, end: 20171218
  7. PREDNISOLONE. [Concomitant]
     Active Substance: PREDNISOLONE
     Indication: SKIN LESION
     Route: 065
  8. GEMCITABINE [Suspect]
     Active Substance: GEMCITABINE\GEMCITABINE HYDROCHLORIDE
     Dosage: 600 MILLIGRAM
     Route: 041
     Dates: start: 20171222, end: 20171222
  9. GEMCITABINE [Suspect]
     Active Substance: GEMCITABINE\GEMCITABINE HYDROCHLORIDE
     Dosage: 1200 MILLIGRAM
     Route: 041
     Dates: start: 20180110, end: 20180110
  10. GEMCITABINE [Suspect]
     Active Substance: GEMCITABINE\GEMCITABINE HYDROCHLORIDE
     Dosage: 1200 MILLIGRAM
     Route: 041
     Dates: start: 20180117, end: 20180117
  11. CISPLATIN. [Suspect]
     Active Substance: CISPLATIN
     Dosage: 100 MILLIGRAM
     Route: 041
     Dates: start: 20170110, end: 20180110
  12. K-SUPPLY [Concomitant]
     Active Substance: POTASSIUM CHLORIDE
     Indication: ADVERSE EVENT
     Route: 048
  13. CISPLATIN. [Suspect]
     Active Substance: CISPLATIN
     Indication: ADULT T-CELL LYMPHOMA/LEUKAEMIA
     Dosage: 100 MILLIGRAM
     Route: 041
     Dates: start: 20171215, end: 20171215
  14. DEXART [Suspect]
     Active Substance: DEXAMETHASONE SODIUM PHOSPHATE
     Indication: ADULT T-CELL LYMPHOMA/LEUKAEMIA
     Dosage: 39.6 MILLIGRAM
     Route: 041
     Dates: start: 20171215, end: 20171215
  15. DEXART [Suspect]
     Active Substance: DEXAMETHASONE SODIUM PHOSPHATE
     Dosage: 39.6 MILLIGRAM
     Route: 041
     Dates: start: 20180110, end: 20180110
  16. PREDNISOLONE. [Concomitant]
     Active Substance: PREDNISOLONE
     Indication: ADVERSE EVENT
     Route: 065
     Dates: start: 20171128
  17. FILGRASTIM [Concomitant]
     Active Substance: FILGRASTIM
     Indication: ADVERSE EVENT
     Route: 058

REACTIONS (4)
  - Dermatitis exfoliative generalised [Recovered/Resolved]
  - Hypokalaemia [Recovered/Resolved]
  - Bone marrow failure [Recovered/Resolved]
  - Tachycardia [Not Recovered/Not Resolved]

NARRATIVE: CASE EVENT DATE: 20171128
